FAERS Safety Report 5773088-3 (Version None)
Quarter: 2008Q2

REPORT INFORMATION
  Report Type: 
  Country: None (occurrence: None)
  Receive Date: 20080611
  Receipt Date: 20080602
  Transmission Date: 20081010
  Serious: Yes (Other)
  Sender: FDA-Public Use
  Company Number: 2008AL004126

PATIENT
  Age: 64 Year
  Sex: Male

DRUGS (4)
  1. DIGOXIN [Suspect]
     Dosage: 0.25 MG DAILY PO
     Route: 048
     Dates: start: 20071201
  2. PRILOSEC [Concomitant]
  3. ATACANT HCT [Concomitant]
  4. NITROGLYCERIN [Concomitant]

REACTIONS (4)
  - ANGINA PECTORIS [None]
  - DIZZINESS [None]
  - HEART RATE ABNORMAL [None]
  - THERAPEUTIC AGENT TOXICITY [None]
